FAERS Safety Report 8199243-3 (Version None)
Quarter: 2012Q1

REPORT INFORMATION
  Report Type: 
  Country: None (occurrence: None)
  Receive Date: 20120309
  Receipt Date: 20120229
  Transmission Date: 20120608
  Serious: Yes (Hospitalization, Other)
  Sender: FDA-Public Use
  Company Number: US-ELI_LILLY_AND_COMPANY-US201203000650

PATIENT
  Sex: Female

DRUGS (18)
  1. IRON [Concomitant]
     Dosage: 325 MG, BID
  2. LASIX [Concomitant]
     Dosage: 1 1/2 TABS TWICE DAILY
  3. COUMADIN [Concomitant]
     Dosage: 2.5 MG, QD
  4. TAPAZOLE [Concomitant]
     Dosage: 10 MG, TID
  5. METOLAZONE [Concomitant]
     Dosage: 2.5 MG, 4/W
  6. LOVAZA [Concomitant]
     Dosage: 1200 MG, QD
  7. GABAPENTIN [Concomitant]
     Dosage: 100 MG, TID
  8. FLONASE [Concomitant]
     Dosage: 2 SPRAYS DAILY AS NEEDED
     Route: 045
  9. HUMALOG MIX 75/25 [Suspect]
     Indication: DIABETES MELLITUS
     Dosage: 30 U, EACH MORNING
     Dates: start: 20120101
  10. METOPROLOL SUCCINATE [Concomitant]
     Dosage: 50 MG, EVERYDAY WITH MEALS
  11. HUMALOG MIX 75/25 [Suspect]
     Dosage: 15 U, AT NIGHT
     Dates: start: 20120101
  12. POTASSIUM [Concomitant]
     Dosage: 20 MEQ, BID WITH MEALS
  13. OMEPRAZOLE [Concomitant]
     Dosage: 40 MG, BID
  14. CHOLECALCIFEROL [Concomitant]
     Dosage: 1000 MG, QD
  15. ASPIRIN [Concomitant]
     Dosage: 81 MG, EACH MORNING
  16. VYTORIN [Concomitant]
     Dosage: 10/10 AT BEDTIME
  17. MULTI-VITAMIN [Concomitant]
     Dosage: UNK, QD
  18. GUAIFENESIN [Concomitant]
     Dosage: 400 MG, BID AS NEEDED

REACTIONS (1)
  - CARDIAC FAILURE CONGESTIVE [None]
